FAERS Safety Report 23288635 (Version 1)
Quarter: 2023Q4

REPORT INFORMATION
  Report Type: Spontaneous
  Country: US (occurrence: US)
  Receive Date: 20231212
  Receipt Date: 20231212
  Transmission Date: 20240110
  Serious: No
  Sender: FDA-Public Use
  Company Number: US-SA-SAC20231205000804

PATIENT
  Sex: Male

DRUGS (13)
  1. DUPIXENT [Suspect]
     Active Substance: DUPILUMAB
     Indication: Asthma
     Dosage: 300 MG, QOW
     Route: 058
  2. HERBALS\MINERALS\VITAMINS [Suspect]
     Active Substance: HERBALS\MINERALS\VITAMINS
     Dosage: UNK
  3. RESTASIS [Concomitant]
     Active Substance: CYCLOSPORINE
  4. LUMIGAN [Concomitant]
     Active Substance: BIMATOPROST
  5. ACETYLCYSTEINE [Concomitant]
     Active Substance: ACETYLCYSTEINE
  6. FLOVENT HFA [Concomitant]
     Active Substance: FLUTICASONE PROPIONATE
  7. ATORVASTATIN CALCIUM [Concomitant]
     Active Substance: ATORVASTATIN CALCIUM
  8. CIALIS [Concomitant]
     Active Substance: TADALAFIL
  9. MONTELUKAST SODIUM [Concomitant]
     Active Substance: MONTELUKAST SODIUM
  10. DUTASTERIDE [Concomitant]
     Active Substance: DUTASTERIDE
  11. EDARBI [Concomitant]
     Active Substance: AZILSARTAN KAMEDOXOMIL
  12. TOBI [Concomitant]
     Active Substance: TOBRAMYCIN
  13. TOBI [Concomitant]
     Active Substance: TOBRAMYCIN

REACTIONS (1)
  - Drug ineffective for unapproved indication [Unknown]
